FAERS Safety Report 9051359 (Version 1)
Quarter: 2013Q1

REPORT INFORMATION
  Report Type: Spontaneous
  Country: US (occurrence: US)
  Receive Date: 20130206
  Receipt Date: 20130206
  Transmission Date: 20140127
  Serious: No
  Sender: FDA-Public Use
  Company Number: US-009507513-1302USA000747

PATIENT
  Sex: 0

DRUGS (4)
  1. LISINOPRIL [Suspect]
     Dosage: UNK
  2. PRISTIQ [Concomitant]
     Indication: DEPRESSION
     Dosage: 1 DF, QD
  3. HYDROCHLOROTHIAZIDE [Concomitant]
  4. TRAMADOL HYDROCHLORIDE [Concomitant]

REACTIONS (1)
  - Drug hypersensitivity [Unknown]
